FAERS Safety Report 10354998 (Version 1)
Quarter: 2014Q3

REPORT INFORMATION
  Report Type: Spontaneous
  Country: US (occurrence: None)
  Receive Date: 20140729
  Receipt Date: 20140729
  Transmission Date: 20150326
  Serious: Yes (Disabling)
  Sender: FDA-Public Use
  Company Number: None

PATIENT
  Age: 36 Year
  Sex: Female
  Weight: 122.47 kg

DRUGS (1)
  1. HYDROCORTISONE 5MG QUALITEST [Suspect]
     Active Substance: HYDROCORTISONE
     Indication: ADRENAL INSUFFICIENCY
     Dosage: 6 PILLS ?4 MORN/2 EVENING ?TAKEN BY MOUTH
     Route: 048
     Dates: start: 201407

REACTIONS (3)
  - Fatigue [None]
  - Adrenal disorder [None]
  - Blood pressure decreased [None]

NARRATIVE: CASE EVENT DATE: 20140722
